FAERS Safety Report 8569043-0 (Version None)
Quarter: 2012Q3

REPORT INFORMATION
  Report Type: 
  Country: None (occurrence: None)
  Receive Date: 20120803
  Receipt Date: 20120320
  Transmission Date: 20120928
  Serious: No
  Sender: FDA-Public Use
  Company Number: US-ABBOTT-12P-163-0916799-00

PATIENT
  Sex: Male
  Weight: 87.168 kg

DRUGS (6)
  1. ALLOPURINOL [Concomitant]
     Indication: PRODUCT USED FOR UNKNOWN INDICATION
  2. LOVAZA [Concomitant]
     Indication: PRODUCT USED FOR UNKNOWN INDICATION
  3. M.V.I. [Concomitant]
     Indication: PRODUCT USED FOR UNKNOWN INDICATION
  4. ASPIRIN [Concomitant]
     Indication: PRODUCT USED FOR UNKNOWN INDICATION
  5. NIASPAN [Suspect]
     Indication: BLOOD TRIGLYCERIDES INCREASED
  6. BYSOLIC [Concomitant]
     Indication: PRODUCT USED FOR UNKNOWN INDICATION

REACTIONS (5)
  - MIDDLE INSOMNIA [None]
  - PRURITUS [None]
  - WEIGHT DECREASED [None]
  - RASH [None]
  - FEELING HOT [None]
